FAERS Safety Report 17665481 (Version 4)
Quarter: 2020Q3

REPORT INFORMATION
  Report Type: Spontaneous
  Country: US (occurrence: US)
  Receive Date: 20200414
  Receipt Date: 20200714
  Transmission Date: 20201102
  Serious: Yes (Hospitalization, Other)
  Sender: FDA-Public Use
  Company Number: US-VERTEX PHARMACEUTICALS-2020-008399

PATIENT
  Age: 30 Year
  Sex: Male
  Weight: 85 kg

DRUGS (21)
  1. DILTIAZEM. [Suspect]
     Active Substance: DILTIAZEM
     Indication: HEART RATE INCREASED
     Dosage: UNK
     Route: 048
  2. SODIUM CHLORIDE. [Concomitant]
     Active Substance: SODIUM CHLORIDE
  3. PROVENTIL [Concomitant]
     Active Substance: ALBUTEROL
  4. TRIKAFTA [Suspect]
     Active Substance: ELEXACAFTOR\IVACAFTOR\TEZACAFTOR
     Indication: CYSTIC FIBROSIS
     Dosage: ALTERNATING MORNING AND EVENING TABLETS IN THE MORNING EVERY OTHER DAY
     Route: 048
     Dates: start: 20200212, end: 202005
  5. TRIKAFTA [Suspect]
     Active Substance: ELEXACAFTOR\IVACAFTOR\TEZACAFTOR
     Dosage: UNK
     Route: 048
     Dates: start: 2020
  6. CREON [Concomitant]
     Active Substance: PANCRELIPASE AMYLASE\PANCRELIPASE LIPASE\PANCRELIPASE PROTEASE
     Dosage: 24K?76K?120K
  7. AZITHROMYCIN ANHYDROUS. [Concomitant]
     Active Substance: AZITHROMYCIN ANHYDROUS
     Dosage: 500 MG
  8. VITAMIN D3 [Concomitant]
     Active Substance: CHOLECALCIFEROL
  9. CETIRIZINE [Concomitant]
     Active Substance: CETIRIZINE HYDROCHLORIDE
  10. TOUJEO [Concomitant]
     Active Substance: INSULIN GLARGINE
  11. AZTREONAM LYSINE [Suspect]
     Active Substance: AZTREONAM LYSINE
     Indication: CYSTIC FIBROSIS
     Dosage: 75 MG, TID, QOM
  12. ALBUTEROL SULFATE. [Concomitant]
     Active Substance: ALBUTEROL SULFATE
  13. URSODIOL. [Concomitant]
     Active Substance: URSODIOL
     Dosage: 300 MG
  14. PULMOZYME [Concomitant]
     Active Substance: DORNASE ALFA
     Dosage: 1 MG/ML SOLUTION
  15. AZTREONAM LYSINE [Suspect]
     Active Substance: AZTREONAM LYSINE
     Indication: PSEUDOMONAS INFECTION
  16. FIASP [Concomitant]
     Active Substance: INSULIN ASPART
     Dosage: 100/ ML VIAL
  17. METOPROLOL. [Concomitant]
     Active Substance: METOPROLOL
  18. VERAPAMIL [Concomitant]
     Active Substance: VERAPAMIL HYDROCHLORIDE
  19. ZYRTEC [Concomitant]
     Active Substance: CETIRIZINE HYDROCHLORIDE
     Dosage: 10 MG
  20. MVW COMPLETE FORMULATION D3000 [Concomitant]
     Active Substance: VITAMINS\ZINC
  21. CAYSTON [Concomitant]
     Active Substance: AZTREONAM
     Dosage: 75MG/ ML VIAL
     Route: 045

REACTIONS (13)
  - Blood creatinine increased [Unknown]
  - Rhabdomyolysis [Recovering/Resolving]
  - Weight increased [Unknown]
  - Increased appetite [Unknown]
  - Pulmonary function test decreased [Unknown]
  - Blood glucose increased [Recovered/Resolved]
  - Chest discomfort [Recovered/Resolved]
  - Gout [Not Recovered/Not Resolved]
  - Ingrown hair [Unknown]
  - Limb discomfort [Recovered/Resolved]
  - Euphoric mood [Recovered/Resolved]
  - Myocarditis [Unknown]
  - Productive cough [Recovered/Resolved]

NARRATIVE: CASE EVENT DATE: 2020
